FAERS Safety Report 11323418 (Version 5)
Quarter: 2016Q2

REPORT INFORMATION
  Report Type: Report from Study
  Country: US (occurrence: US)
  Receive Date: 20150730
  Receipt Date: 20160624
  Transmission Date: 20160815
  Serious: Yes (Other)
  Sender: FDA-Public Use
  Company Number: US-ROCHE-1614815

PATIENT
  Age: 74 Year
  Sex: Female
  Weight: 75.82 kg

DRUGS (10)
  1. REGLAN [Concomitant]
     Active Substance: METOCLOPRAMIDE HYDROCHLORIDE
     Dosage: 1 TABLET 4 TIMES EVERYDAY 30 MINUTES BEFORE MEALS AND AT BED TIME.
     Route: 065
  2. LISINOPRIL. [Concomitant]
     Active Substance: LISINOPRIL
     Dosage: 1 TABLET EVERYDAY
     Route: 065
  3. NORVASC [Concomitant]
     Active Substance: AMLODIPINE BESYLATE
     Dosage: 1 TABLET EVERYDAY
     Route: 065
  4. ZYRTEC [Concomitant]
     Active Substance: CETIRIZINE HYDROCHLORIDE
     Dosage: 1 TABLET EVERYDAY
     Route: 065
  5. ESBRIET [Suspect]
     Active Substance: PIRFENIDONE
     Route: 048
     Dates: start: 20150520
  6. SINGULAIR [Concomitant]
     Active Substance: MONTELUKAST SODIUM
     Dosage: 1 TABLET EVERYDAY IN EVENING
     Route: 065
  7. MOBIC [Concomitant]
     Active Substance: MELOXICAM
     Dosage: 1 TABLET EVERYDAY
     Route: 065
  8. PRILOSEC [Concomitant]
     Active Substance: OMEPRAZOLE MAGNESIUM
     Dosage: 1 CAPSULES EVERYDAY BEFORE MEAL
     Route: 065
  9. ESBRIET [Suspect]
     Active Substance: PIRFENIDONE
     Indication: IDIOPATHIC PULMONARY FIBROSIS
     Route: 048
     Dates: start: 20150408
  10. SPIRONOLACTONE. [Concomitant]
     Active Substance: SPIRONOLACTONE
     Dosage: 1 TABLET EVERYDAY
     Route: 065

REACTIONS (10)
  - Abdominal discomfort [Recovered/Resolved]
  - Lacrimation increased [Unknown]
  - Tremor [Recovered/Resolved]
  - Liver function test increased [Recovered/Resolved]
  - Cough [Recovered/Resolved]
  - Tooth disorder [Unknown]
  - Decreased appetite [Recovered/Resolved]
  - Herpes zoster [Unknown]
  - Sneezing [Recovered/Resolved]
  - Nasal congestion [Unknown]

NARRATIVE: CASE EVENT DATE: 20150523
